FAERS Safety Report 8577433-5 (Version None)
Quarter: 2012Q3

REPORT INFORMATION
  Report Type: 
  Country: None (occurrence: None)
  Receive Date: 20120807
  Receipt Date: 20120731
  Transmission Date: 20120928
  Serious: Yes (Other)
  Sender: FDA-Public Use
  Company Number: PHHY2011AT105224

PATIENT
  Sex: Female
  Weight: 67 kg

DRUGS (4)
  1. ZOLPIDEM HEXAL [Suspect]
     Indication: INSOMNIA
     Dosage: 5 MG
     Dates: end: 20120731
  2. SERTRALINE [Concomitant]
  3. OXAZEPAM [Concomitant]
     Dosage: 0.5 DF, QD
  4. ZOLPIDEM HEXAL [Suspect]
     Dosage: 10 MG, QD
     Route: 048
     Dates: start: 20111028

REACTIONS (10)
  - AGITATION [None]
  - PSORIASIS [None]
  - DEPRESSION [None]
  - ARTHRITIS [None]
  - NERVOUSNESS [None]
  - CRYING [None]
  - HYPERHIDROSIS [None]
  - TREMOR [None]
  - MENTAL DISORDER [None]
  - FATIGUE [None]
